FAERS Safety Report 24729733 (Version 1)
Quarter: 2024Q4

REPORT INFORMATION
  Report Type: Report from Study
  Country: US (occurrence: US)
  Receive Date: 20241213
  Receipt Date: 20241213
  Transmission Date: 20250114
  Serious: Yes (Other)
  Sender: ABBVIE
  Company Number: US-ABBVIE-6038962

PATIENT
  Age: 86 Year
  Sex: Male

DRUGS (2)
  1. LINZESS [Suspect]
     Active Substance: LINACLOTIDE
     Indication: Vertigo
     Route: 065
     Dates: end: 202406
  2. LINZESS [Suspect]
     Active Substance: LINACLOTIDE
     Indication: Vertigo
     Route: 065
     Dates: end: 20241201

REACTIONS (4)
  - Hip arthroplasty [Recovering/Resolving]
  - Amnesia [Recovering/Resolving]
  - Cerebrovascular accident [Unknown]
  - Vertigo [Unknown]

NARRATIVE: CASE EVENT DATE: 20240623
